FAERS Safety Report 7966049-7 (Version None)
Quarter: 2011Q4

REPORT INFORMATION
  Report Type: 
  Country: None (occurrence: None)
  Receive Date: 20111208
  Receipt Date: 20111205
  Transmission Date: 20120403
  Serious: Yes (Other)
  Sender: FDA-Public Use
  Company Number: US-PFIZER INC-2011296312

PATIENT
  Age: 57 Year
  Sex: Female

DRUGS (3)
  1. PAXIL [Suspect]
  2. PRISTIQ [Suspect]
     Indication: DEPRESSION
     Dosage: UNK
  3. PRISTIQ [Suspect]
     Indication: MOOD SWINGS

REACTIONS (2)
  - SUICIDAL IDEATION [None]
  - NIGHTMARE [None]
